FAERS Safety Report 8268465-5 (Version None)
Quarter: 2012Q2

REPORT INFORMATION
  Report Type: 
  Country: None (occurrence: None)
  Receive Date: 20120409
  Receipt Date: 20120402
  Transmission Date: 20120825
  Serious: No
  Sender: FDA-Public Use
  Company Number: US-B.I. PHARMACEUTICALS,INC./RIDGEFIELD-2012-BP-06131BP

PATIENT
  Age: 65 Year
  Sex: Male
  Weight: 91 kg

DRUGS (3)
  1. PRADAXA [Suspect]
     Dosage: 300 MG
     Route: 048
     Dates: start: 20120329, end: 20120401
  2. PRADAXA [Suspect]
     Indication: DEEP VEIN THROMBOSIS
     Dosage: 300 MG
     Route: 048
     Dates: start: 20100101, end: 20120327
  3. URSODIOL [Concomitant]
     Indication: PROPHYLAXIS

REACTIONS (4)
  - HAEMATURIA [None]
  - HAEMORRHAGE URINARY TRACT [None]
  - VITAMIN B12 DECREASED [None]
  - NEPHROLITHIASIS [None]
